FAERS Safety Report 8248039-2 (Version None)
Quarter: 2012Q1

REPORT INFORMATION
  Report Type: 
  Country: None (occurrence: None)
  Receive Date: 20120330
  Receipt Date: 20120323
  Transmission Date: 20120608
  Serious: Yes (Other)
  Sender: FDA-Public Use
  Company Number: JP-JNJFOC-20120301207

PATIENT
  Age: 80 Year
  Sex: Female
  Weight: 45 kg

DRUGS (10)
  1. ALL OTHER THERAPEUTIC DRUGS [Concomitant]
     Route: 065
  2. PREDNISOLONE [Concomitant]
     Route: 048
     Dates: start: 20120207, end: 20120209
  3. PREDNISOLONE [Concomitant]
     Route: 048
     Dates: start: 20120213, end: 20120215
  4. AGENTS FOR PEPTIC ULCER [Concomitant]
     Indication: PEPTIC ULCER
     Route: 065
  5. RABEPRAZOLE SODIUM [Concomitant]
     Indication: GASTROOESOPHAGEAL REFLUX DISEASE
     Route: 048
  6. LEVOTHYROXINE SODIUM [Concomitant]
     Indication: THYROIDITIS CHRONIC
     Route: 048
  7. GALANTAMINE HYDROBROMIDE [Suspect]
     Indication: DEMENTIA ALZHEIMER'S TYPE
     Route: 048
     Dates: start: 20120119, end: 20120221
  8. STEROIDS NOS [Concomitant]
     Indication: MULTIPLE SCLEROSIS
     Route: 065
     Dates: start: 20120101
  9. PREDNISOLONE [Concomitant]
     Indication: MULTIPLE SCLEROSIS
     Route: 048
     Dates: start: 20120210, end: 20120212
  10. PREDNISOLONE [Concomitant]
     Route: 048
     Dates: start: 20120216, end: 20120218

REACTIONS (1)
  - HEPATIC FUNCTION ABNORMAL [None]
